FAERS Safety Report 4438306-2 (Version None)
Quarter: 2004Q3

REPORT INFORMATION
  Report Type: 
  Country: None (occurrence: None)
  Receive Date: 20040831
  Receipt Date: 20040713
  Transmission Date: 20050211
  Serious: No
  Sender: FDA-Public Use
  Company Number: US-GLAXOSMITHKLINE-A0518100A

PATIENT
  Age: 14 Year
  Sex: Male

DRUGS (5)
  1. WELLBUTRIN XL [Suspect]
     Indication: DEPRESSION
     Dosage: 300MG PER DAY
     Route: 048
     Dates: start: 20040711
  2. WELLBUTRIN SR [Suspect]
     Indication: DEPRESSION
     Route: 048
  3. ALLERGY SHOTS [Concomitant]
  4. PROVENTIL [Concomitant]
  5. SINGULAIR [Concomitant]

REACTIONS (4)
  - CHEST PAIN [None]
  - NASAL CONGESTION [None]
  - RHINORRHOEA [None]
  - SNEEZING [None]
